FAERS Safety Report 9544154 (Version 2)
Quarter: 2013Q4

REPORT INFORMATION
  Report Type: Spontaneous
  Country: IT (occurrence: IT)
  Receive Date: 20130923
  Receipt Date: 20131017
  Transmission Date: 20140711
  Serious: Yes (Hospitalization)
  Sender: FDA-Public Use
  Company Number: PHHY2013IT105048

PATIENT
  Age: 83 Year
  Sex: Female

DRUGS (5)
  1. HYDROCHLOROTHIAZIDE [Suspect]
     Indication: HYPERTENSION
     Dosage: UNK UKN, UNK
     Dates: start: 20130101, end: 20130701
  2. BARNIDIPINE [Suspect]
     Dosage: UNK UKN, UNK
     Dates: start: 20130101, end: 20130701
  3. POTASSIUM CHLORIDE [Concomitant]
  4. ELECTROLYTE SOLUTIONS [Concomitant]
  5. PHYSIOLOGICAL SALINE SOLUTION [Concomitant]

REACTIONS (2)
  - Syncope [Recovering/Resolving]
  - Multiple fractures [Recovering/Resolving]
